FAERS Safety Report 9625620 (Version 1)
Quarter: 2013Q4

REPORT INFORMATION
  Report Type: Spontaneous
  Country: US (occurrence: None)
  Receive Date: 20131015
  Receipt Date: 20131015
  Transmission Date: 20140711
  Serious: Yes (Life-Threatening)
  Sender: FDA-Public Use
  Company Number: None

PATIENT
  Age: 49 Year
  Sex: Male
  Weight: 79 kg

DRUGS (6)
  1. STRIBILD [Suspect]
     Indication: HIV INFECTION
     Route: 048
     Dates: start: 20130925, end: 20131006
  2. ZYPREXA [Concomitant]
  3. SULFAMETHOXAZOLE [Concomitant]
  4. MG-TRIMETHOPRIM [Concomitant]
  5. AZITHROMYCIN [Concomitant]
  6. HYDROCHLOROTHIAZIDE [Concomitant]

REACTIONS (5)
  - Muscle spasms [None]
  - Nausea [None]
  - Vomiting [None]
  - Chromaturia [None]
  - Myalgia [None]
